FAERS Safety Report 8485420 (Version 8)
Quarter: 2012Q4

REPORT INFORMATION
  Report Type: 
  Country: US (occurrence: US)
  Receive Date: 20120330
  Receipt Date: 20121221
  Transmission Date: 20130627
  Serious: Yes (Hospitalization, Disabling, Other)
  Sender: FDA-Public Use
  Company Number: US-009507513-1203USA03309

PATIENT

DRUGS (5)
  1. FOSAMAX [Suspect]
     Indication: OSTEOPOROSIS
     Dosage: 10 mg, UNK
     Route: 048
     Dates: start: 199607, end: 199705
  2. FOSAMAX [Suspect]
     Indication: OSTEOPENIA
     Dosage: 10 mg, UNK
     Route: 048
     Dates: start: 199712, end: 20011120
  3. FOSAMAX [Suspect]
     Indication: OSTEOPENIA
     Dosage: 70 mg, UNK
     Route: 048
     Dates: start: 20090122, end: 201107
  4. FOSAMAX PLUS D [Suspect]
     Indication: OSTEOPOROSIS
     Dosage: 70/5600
     Route: 048
     Dates: start: 20011120, end: 20090122
  5. FOSAMAX PLUS D [Suspect]
     Indication: OSTEOPENIA
     Dosage: 70/2800
     Route: 048
     Dates: start: 20070530

REACTIONS (43)
  - Femur fracture [Recovering/Resolving]
  - Open reduction of fracture [Unknown]
  - Osteoporosis [Unknown]
  - Stress fracture [Unknown]
  - Femur fracture [Unknown]
  - Bone density decreased [Unknown]
  - Hip fracture [Unknown]
  - Hip arthroplasty [Unknown]
  - Femur fracture [Unknown]
  - Tooth disorder [Unknown]
  - Hormone level abnormal [Unknown]
  - Cardiac disorder [Unknown]
  - Hypertension [Unknown]
  - Fall [Unknown]
  - Arthritis [Unknown]
  - Pneumonia [Unknown]
  - Osteoarthritis [Unknown]
  - Joint effusion [Unknown]
  - Perineurial cyst [Unknown]
  - Tooth disorder [Unknown]
  - Myofascial pain syndrome [Unknown]
  - Periarthritis [Unknown]
  - Hypothyroidism [Unknown]
  - Spinal column stenosis [Unknown]
  - Lumbar radiculopathy [Unknown]
  - Urinary tract infection [Unknown]
  - Polypectomy [Unknown]
  - Blood cholesterol increased [Unknown]
  - Rotator cuff syndrome [Unknown]
  - Groin pain [Unknown]
  - Dyspnoea [Unknown]
  - Cardiac valve disease [Unknown]
  - Pneumonia [Unknown]
  - Dyspnoea [Unknown]
  - Haemoptysis [Unknown]
  - Myalgia [Unknown]
  - Cough [Not Recovered/Not Resolved]
  - Back pain [Unknown]
  - Arthralgia [Recovering/Resolving]
  - Arthralgia [Unknown]
  - Headache [Unknown]
  - Pain in extremity [Unknown]
  - Dizziness [Unknown]
